FAERS Safety Report 4831659-2 (Version None)
Quarter: 2005Q4

REPORT INFORMATION
  Report Type: 
  Country: None (occurrence: None)
  Receive Date: 20051116
  Receipt Date: 20051104
  Transmission Date: 20060501
  Serious: Yes (Hospitalization)
  Sender: FDA-Public Use
  Company Number: 2005128060

PATIENT
  Age: 67 Year
  Sex: Female
  Weight: 46 kg

DRUGS (2)
  1. LYRICA [Suspect]
     Indication: PHANTOM PAIN
     Dosage: 150 MG (75 MG, 2 IN 1 D), ORAL
     Route: 048
     Dates: start: 20050501, end: 20050618
  2. OXYCODONE HCL [Suspect]
     Indication: PHANTOM PAIN
     Dosage: 80 MG (40 MG, 2 IN 1 D), ORAL
     Route: 048
     Dates: start: 20050201, end: 20050619

REACTIONS (8)
  - BLOOD ALKALINE PHOSPHATASE INCREASED [None]
  - DEMENTIA [None]
  - DYSKINESIA [None]
  - GAMMA-GLUTAMYLTRANSFERASE INCREASED [None]
  - HALLUCINATION [None]
  - MUSCLE TWITCHING [None]
  - MYOCLONUS [None]
  - TREMOR [None]
